FAERS Safety Report 10022483 (Version 4)
Quarter: 2015Q2

REPORT INFORMATION
  Report Type: Spontaneous
  Country: US (occurrence: US)
  Receive Date: 20140319
  Receipt Date: 20150608
  Transmission Date: 20150821
  Serious: Yes (Hospitalization, Disabling, Other)
  Sender: FDA-Public Use
  Company Number: US-SA-2014SA029830

PATIENT
  Age: 63 Year
  Sex: Male

DRUGS (34)
  1. SPIRONOLACTONE. [Concomitant]
     Active Substance: SPIRONOLACTONE
  2. PLAVIX [Suspect]
     Active Substance: CLOPIDOGREL BISULFATE
     Indication: STENT PLACEMENT
     Route: 048
     Dates: start: 20080708, end: 20080805
  3. BUMEX [Concomitant]
     Active Substance: BUMETANIDE
  4. NORVASC [Concomitant]
     Active Substance: AMLODIPINE BESYLATE
  5. IPRATROPIUM [Concomitant]
     Active Substance: IPRATROPIUM
  6. DULCOLAX [Concomitant]
     Active Substance: BISACODYL OR DOCUSATE SODIUM
  7. COMBIVENT [Concomitant]
     Active Substance: ALBUTEROL SULFATE\IPRATROPIUM BROMIDE
     Indication: DYSPNOEA
  8. SYMBICORT [Concomitant]
     Active Substance: BUDESONIDE\FORMOTEROL FUMARATE DIHYDRATE
  9. DOXYCYCLINE. [Concomitant]
     Active Substance: DOXYCYCLINE
     Route: 048
  10. PREVACID [Concomitant]
     Active Substance: LANSOPRAZOLE
  11. PRILOSEC [Concomitant]
     Active Substance: OMEPRAZOLE MAGNESIUM
  12. ALDACTONE [Concomitant]
     Active Substance: SPIRONOLACTONE
  13. METOPROLOL TARTRATE. [Concomitant]
     Active Substance: METOPROLOL TARTRATE
     Route: 048
  14. MUCINEX [Concomitant]
     Active Substance: GUAIFENESIN
  15. COREG [Concomitant]
     Active Substance: CARVEDILOL
  16. LEXAPRO [Concomitant]
     Active Substance: ESCITALOPRAM OXALATE
     Route: 048
  17. AMBIEN [Concomitant]
     Active Substance: ZOLPIDEM TARTRATE
     Indication: INSOMNIA
     Route: 048
  18. COLACE [Concomitant]
     Active Substance: DOCUSATE SODIUM
  19. LISINOPRIL. [Concomitant]
     Active Substance: LISINOPRIL
     Route: 048
  20. ALBUTEROL. [Concomitant]
     Active Substance: ALBUTEROL
     Indication: DYSPNOEA
  21. K-DUR [Concomitant]
     Active Substance: POTASSIUM CHLORIDE
     Route: 048
  22. ATROVENT [Concomitant]
     Active Substance: IPRATROPIUM BROMIDE
  23. VICODIN [Concomitant]
     Active Substance: ACETAMINOPHEN\HYDROCODONE BITARTRATE
     Route: 048
  24. IMDUR [Concomitant]
     Active Substance: ISOSORBIDE MONONITRATE
  25. SIMVASTATIN. [Concomitant]
     Active Substance: SIMVASTATIN
  26. KEPPRA [Concomitant]
     Active Substance: LEVETIRACETAM
  27. SPIRIVA [Concomitant]
     Active Substance: TIOTROPIUM BROMIDE MONOHYDRATE
  28. HYDRALAZINE [Concomitant]
     Active Substance: HYDRALAZINE HYDROCHLORIDE
  29. ASPIRIN. [Concomitant]
     Active Substance: ASPIRIN
     Dates: start: 200808
  30. CATAPRES [Concomitant]
     Active Substance: CLONIDINE HYDROCHLORIDE
  31. DILANTIN [Concomitant]
     Active Substance: PHENYTOIN
  32. MOXIFLOXACIN [Concomitant]
     Active Substance: MOXIFLOXACIN
     Dosage: EYEDROPS
  33. NYSTATIN. [Concomitant]
     Active Substance: NYSTATIN
     Dosage: SWISH AND SWALLOW
  34. LOPRESSOR [Concomitant]
     Active Substance: METOPROLOL TARTRATE

REACTIONS (23)
  - Multiple injuries [Not Recovered/Not Resolved]
  - Loss of employment [Not Recovered/Not Resolved]
  - Subdural haematoma [Unknown]
  - Physical disability [Not Recovered/Not Resolved]
  - Economic problem [Not Recovered/Not Resolved]
  - Cardiac failure congestive [Unknown]
  - Scar [Unknown]
  - Anhedonia [Not Recovered/Not Resolved]
  - Social problem [Not Recovered/Not Resolved]
  - Chronic obstructive pulmonary disease [Unknown]
  - Drug hypersensitivity [Unknown]
  - Psychological trauma [Not Recovered/Not Resolved]
  - Amnesia [Unknown]
  - Aphasia [Unknown]
  - Body temperature decreased [Unknown]
  - Tension [Not Recovered/Not Resolved]
  - Gastrointestinal haemorrhage [Unknown]
  - Pain [Not Recovered/Not Resolved]
  - Diverticulitis [Unknown]
  - Deformity [Not Recovered/Not Resolved]
  - Pulmonary hypertension [Unknown]
  - Cerebral haemorrhage [Unknown]
  - Hypertension [Unknown]

NARRATIVE: CASE EVENT DATE: 200708
